FAERS Safety Report 23235232 (Version 2)
Quarter: 2024Q3

REPORT INFORMATION
  Report Type: Spontaneous
  Country: JP (occurrence: JP)
  Receive Date: 20231128
  Receipt Date: 20240918
  Transmission Date: 20241016
  Serious: Yes (Other)
  Sender: AMGEN
  Company Number: JP-AMGEN-JPNSP2023209325

PATIENT
  Sex: Male

DRUGS (7)
  1. BLINCYTO [Suspect]
     Active Substance: BLINATUMOMAB
     Indication: B-cell type acute leukaemia
     Dosage: 9 MICROGRAM, QD [(CYCLE 1: DAY 1-7), CONTINUING]
     Route: 042
  2. BLINCYTO [Suspect]
     Active Substance: BLINATUMOMAB
     Dosage: 28 MICROGRAM, QD [(CYCLE 1: DAY 8-28), CONTINUING]
     Route: 042
  3. BLINCYTO [Suspect]
     Active Substance: BLINATUMOMAB
     Dosage: 28 MICROGRAM (CYCLE 2: FROM DAY 1 TO DAY 3)
     Route: 042
  4. BLINCYTO [Suspect]
     Active Substance: BLINATUMOMAB
     Dosage: 9 MICROGRAM (CYCLE 3: FROM DAY 1 TO DAY 3)
     Route: 042
  5. BLINCYTO [Suspect]
     Active Substance: BLINATUMOMAB
     Dosage: 9 MICROGRAM (CYCLE 3: FROM DAY 11 TO DAY 28)
     Route: 042
  6. BLINCYTO [Suspect]
     Active Substance: BLINATUMOMAB
     Dosage: 9 MICROGRAM (CYCLE 4: FROM DAY 1 TO DAY 16)
     Route: 042
  7. BLINCYTO [Suspect]
     Active Substance: BLINATUMOMAB
     Dosage: 9 MICROGRAM (CYCLE 5: FROM DAY 1 TO DAY 3)
     Route: 042

REACTIONS (5)
  - Organising pneumonia [Unknown]
  - Immune effector cell-associated neurotoxicity syndrome [Unknown]
  - Thrombocytopenia [Unknown]
  - Confusional state [Unknown]
  - Aphasia [Unknown]
